FAERS Safety Report 22017312 (Version 2)
Quarter: 2023Q1

REPORT INFORMATION
  Report Type: Spontaneous
  Country: GB (occurrence: GB)
  Receive Date: 20230221
  Receipt Date: 20230309
  Transmission Date: 20230417
  Serious: Yes (Other)
  Sender: FDA-Public Use
  Company Number: None

PATIENT
  Age: 22 Year
  Sex: Male
  Weight: 119 kg

DRUGS (5)
  1. DOXYCYCLINE [Suspect]
     Active Substance: DOXYCYCLINE
     Indication: Acute sinusitis
     Dosage: 100 MG OD AFER INITIAL DOSE OF 200MG OD ON 1ST DAY. 7 DAYS COURSE
     Route: 048
     Dates: start: 20230127
  2. DOXYCYCLINE [Suspect]
     Active Substance: DOXYCYCLINE
     Dosage: 100 MG OD AFER INITIAL DOSE OF 200MG OD ON 1ST DAY. 7 DAYS COURSE
     Route: 048
     Dates: start: 20230128, end: 20230203
  3. AMOXICILLIN [Concomitant]
     Active Substance: AMOXICILLIN
     Indication: Ill-defined disorder
     Dosage: 1 DF, 3X/DAY ONE CAPSULE TO BE TAKEN THREE TIMES A DAY FOR 14 DAYS
     Dates: start: 20230215
  4. PROPRANOLOL [Concomitant]
     Active Substance: PROPRANOLOL HYDROCHLORIDE
     Indication: Anxiety
     Dosage: 1 DF, 3X/DAY AS NEEDED
     Dates: start: 20220715
  5. SERTRALINE [Concomitant]
     Active Substance: SERTRALINE HYDROCHLORIDE
     Indication: Depression
     Dosage: 1 DF, DAILY
     Dates: start: 20220715

REACTIONS (5)
  - Swollen tongue [Recovered/Resolved]
  - Vomiting [Unknown]
  - Nausea [Unknown]
  - Retching [Unknown]
  - Tongue oedema [Recovered/Resolved]

NARRATIVE: CASE EVENT DATE: 20230127
